FAERS Safety Report 23118114 (Version 1)
Quarter: 2023Q4

REPORT INFORMATION
  Report Type: Spontaneous
  Country: JP (occurrence: JP)
  Receive Date: 20231027
  Receipt Date: 20231027
  Transmission Date: 20240109
  Serious: Yes (Death, Other)
  Sender: FDA-Public Use
  Company Number: JP-MALLINCKRODT-MNK202305253

PATIENT
  Age: 84 Year
  Sex: Male

DRUGS (1)
  1. NITRIC OXIDE [Suspect]
     Active Substance: NITRIC OXIDE
     Indication: Pulmonary hypertension
     Dosage: UNKNOWN
     Route: 055
     Dates: start: 20231016, end: 20231017

REACTIONS (2)
  - Cardiogenic shock [Fatal]
  - Pulmonary hypertension [Unknown]

NARRATIVE: CASE EVENT DATE: 20231001
